FAERS Safety Report 12710688 (Version 1)
Quarter: 2016Q3

REPORT INFORMATION
  Report Type: Report from Study
  Country: JP (occurrence: JP)
  Receive Date: 20160902
  Receipt Date: 20160902
  Transmission Date: 20161109
  Serious: Yes (Other)
  Sender: FDA-Public Use
  Company Number: JP-ROCHE-1824054

PATIENT
  Age: 73 Year
  Sex: Female
  Weight: 47 kg

DRUGS (6)
  1. BEVACIZUMAB [Suspect]
     Active Substance: BEVACIZUMAB
     Indication: RADIATION NECROSIS
     Route: 041
  2. BEVACIZUMAB [Suspect]
     Active Substance: BEVACIZUMAB
     Indication: RADIATION NECROSIS
     Route: 041
  3. TEMOZOLOMIDE. [Concomitant]
     Active Substance: TEMOZOLOMIDE
     Indication: BRAIN NEOPLASM
     Dosage: DOSAGE IS UNCERTAIN.
     Route: 065
  4. BEVACIZUMAB [Suspect]
     Active Substance: BEVACIZUMAB
     Indication: RADIATION NECROSIS
     Route: 041
     Dates: start: 20121206
  5. BEVACIZUMAB [Suspect]
     Active Substance: BEVACIZUMAB
     Indication: RADIATION NECROSIS
     Dosage: TWICE
     Route: 041
  6. BEVACIZUMAB [Suspect]
     Active Substance: BEVACIZUMAB
     Indication: RADIATION NECROSIS
     Route: 041

REACTIONS (1)
  - Seizure [Recovered/Resolved]

NARRATIVE: CASE EVENT DATE: 20130311
